FAERS Safety Report 8401448-0 (Version None)
Quarter: 2012Q2

REPORT INFORMATION
  Report Type: 
  Country: None (occurrence: None)
  Receive Date: 20120601
  Receipt Date: 20120530
  Transmission Date: 20120825
  Serious: Yes (Hospitalization)
  Sender: FDA-Public Use
  Company Number: PHHY2012AR046391

PATIENT
  Sex: Male

DRUGS (3)
  1. DIOVAN [Suspect]
     Indication: HYPERTENSION
     Dosage: 160 MG, DAILY
     Dates: start: 20110101, end: 20111101
  2. DIOVAN [Suspect]
     Dosage: 320 MG, DAILY
     Dates: start: 20111101, end: 20111201
  3. DIOVAN [Suspect]
     Dosage: 160 MG, DAILY
     Dates: start: 20111201

REACTIONS (5)
  - PAIN IN EXTREMITY [None]
  - DYSURIA [None]
  - BLADDER PAIN [None]
  - THROMBOSIS [None]
  - BLOOD PRESSURE DECREASED [None]
